FAERS Safety Report 10016084 (Version 1)
Quarter: 2014Q1

REPORT INFORMATION
  Report Type: Spontaneous
  Country: IT (occurrence: IT)
  Receive Date: 20140317
  Receipt Date: 20140317
  Transmission Date: 20141002
  Serious: Yes (Other)
  Sender: FDA-Public Use
  Company Number: IT-PFIZER INC-2014072958

PATIENT
  Age: 80 Year
  Sex: Female

DRUGS (9)
  1. IRINOTECAN HCL [Suspect]
     Indication: COLON CANCER
     Dosage: 130 MG, CYCLIC
     Route: 042
     Dates: start: 20130130, end: 20130611
  2. ERBITUX [Suspect]
     Indication: COLON CANCER
     Dosage: 700 MG, CYCLIC
     Route: 040
     Dates: start: 20130130, end: 20131211
  3. FLUOROURACIL [Suspect]
     Indication: COLON CANCER
     Dosage: 2520 MG, CYCLIC
     Route: 041
     Dates: start: 20130130, end: 20130611
  4. PLAUNAZIDE [Concomitant]
  5. LANOXIN [Concomitant]
  6. RYTMONORM [Concomitant]
  7. NOVORAPID [Concomitant]
  8. LEVEMIR [Concomitant]
  9. LEVOFOLINIC ACID [Concomitant]

REACTIONS (1)
  - Herpes zoster [Unknown]
